APPROVED DRUG PRODUCT: PLAVIX
Active Ingredient: CLOPIDOGREL BISULFATE
Strength: EQ 75MG BASE
Dosage Form/Route: TABLET;ORAL
Application: N020839 | Product #001 | TE Code: AB
Applicant: SANOFI AVENTIS US LLC
Approved: Nov 17, 1997 | RLD: Yes | RS: No | Type: RX